FAERS Safety Report 8341716-4 (Version None)
Quarter: 2012Q2

REPORT INFORMATION
  Report Type: 
  Country: None (occurrence: None)
  Receive Date: 20120507
  Receipt Date: 20120502
  Transmission Date: 20120825
  Serious: Yes (Death, Hospitalization, Other)
  Sender: FDA-Public Use
  Company Number: PHHY2012BR037858

PATIENT
  Sex: Male

DRUGS (7)
  1. LOSARTAN POTASSIUM AND HYDROCHLOROTHIAZIDE [Concomitant]
     Dosage: 1 DF, QD
  2. EXELON [Suspect]
     Indication: DEMENTIA ALZHEIMER'S TYPE
     Dosage: EXELON TTS 9 MG/5 CM2, 1 PATCH DAILY
     Route: 062
     Dates: start: 20120201
  3. PROLOPA [Concomitant]
     Indication: PARKINSON'S DISEASE
     Dosage: N THE MORNING  ? + ?  TABLET,  AT 10 A.M. HALF TABLET, IN THE AFTERNOON (2 PM) ? + ?  TABLET, AND A
  4. ACETYLSALICYLIC ACID SRT [Concomitant]
     Indication: CARDIAC DISORDER
     Dosage: 1 DF, QD
  5. CARDIOL [Concomitant]
     Indication: CARDIAC DISORDER
     Dosage: 1 DF, BID
  6. EXELON [Suspect]
     Dosage: 1 DF, BID
     Route: 048
     Dates: start: 20080101, end: 20120201
  7. EXELON [Suspect]
     Dosage: EXELON TTS PATCH 18MG/10 CM2, 1 PATCH DAILY
     Route: 062

REACTIONS (8)
  - CEREBROVASCULAR ACCIDENT [None]
  - DYSPNOEA [None]
  - CARDIO-RESPIRATORY ARREST [None]
  - SALIVARY HYPERSECRETION [None]
  - HAEMORRHAGE [None]
  - DEPRESSED MOOD [None]
  - PNEUMONIA [None]
  - CARDIAC DISORDER [None]
